FAERS Safety Report 14495361 (Version 1)
Quarter: 2018Q1

REPORT INFORMATION
  Report Type: Spontaneous
  Country: US (occurrence: US)
  Receive Date: 20180206
  Receipt Date: 20180206
  Transmission Date: 20180509
  Serious: No
  Sender: FDA-Public Use
  Company Number: US-SMITH AND NEPHEW, INC-2017SMT00452

PATIENT
  Sex: Female
  Weight: 63.49 kg

DRUGS (4)
  1. ^NEUTRASAL^ [Concomitant]
  2. UNSPECIFIED HEARTBURN MEDICATION [Concomitant]
  3. REGRANEX [Suspect]
     Active Substance: BECAPLERMIN
     Indication: ULCER
     Dosage: UNK, 1X/DAY
     Route: 061
     Dates: start: 201705
  4. NEURONTIN [Concomitant]
     Active Substance: GABAPENTIN

REACTIONS (2)
  - Off label use [Not Recovered/Not Resolved]
  - Wound complication [Recovering/Resolving]

NARRATIVE: CASE EVENT DATE: 2017
